FAERS Safety Report 4716663-7 (Version None)
Quarter: 2005Q3

REPORT INFORMATION
  Report Type: 
  Country: None (occurrence: None)
  Receive Date: 20050714
  Receipt Date: 20050701
  Transmission Date: 20060218
  Serious: Yes (Other)
  Sender: FDA-Public Use
  Company Number: 2005096023

PATIENT
  Sex: Male

DRUGS (1)
  1. UNISOM [Suspect]
     Dosage: 1 BOTTLE ONCE, ORAL
     Route: 048
     Dates: start: 20050701, end: 20050701

REACTIONS (2)
  - LOSS OF CONSCIOUSNESS [None]
  - OVERDOSE [None]
